FAERS Safety Report 11212642 (Version 3)
Quarter: 2015Q4

REPORT INFORMATION
  Report Type: Spontaneous
  Country: AT (occurrence: AT)
  Receive Date: 20150623
  Receipt Date: 20151229
  Transmission Date: 20160304
  Serious: Yes (Hospitalization)
  Sender: FDA-Public Use
  Company Number: AT-TEVA-571274ISR

PATIENT
  Age: 38 Year
  Sex: Female
  Weight: 63 kg

DRUGS (6)
  1. MIRTABENE [Suspect]
     Active Substance: MIRTAZAPINE
     Dates: start: 20150127, end: 20150131
  2. MOVICOL [Concomitant]
     Active Substance: POLYETHYLENE GLYCOL 3350\POTASSIUM CHLORIDE\SODIUM BICARBONATE\SODIUM CHLORIDE
     Dates: start: 20150204, end: 20150222
  3. LYRICA [Suspect]
     Active Substance: PREGABALIN
     Dates: start: 20150204, end: 20150209
  4. MIRTABENE [Suspect]
     Active Substance: MIRTAZAPINE
     Dates: start: 20150201, end: 20150208
  5. LYRICA [Suspect]
     Active Substance: PREGABALIN
     Dates: start: 20150202, end: 20150203
  6. PANTOPRAZOL [Concomitant]
     Active Substance: PANTOPRAZOLE SODIUM
     Dates: start: 201409

REACTIONS (1)
  - Hepatic enzyme increased [Recovering/Resolving]

NARRATIVE: CASE EVENT DATE: 20150207
